FAERS Safety Report 13101139 (Version 4)
Quarter: 2017Q1

REPORT INFORMATION
  Report Type: Spontaneous
  Country: GB (occurrence: GB)
  Receive Date: 20170110
  Receipt Date: 20170203
  Transmission Date: 20170428
  Serious: Yes (Hospitalization, Other)
  Sender: FDA-Public Use
  Company Number: GB-AMGEN-GBRSP2016184553

PATIENT
  Age: 17 Year
  Sex: Female

DRUGS (1)
  1. ENBREL [Suspect]
     Active Substance: ETANERCEPT
     Indication: JUVENILE IDIOPATHIC ARTHRITIS
     Dosage: 50 MG, WEEKLY
     Route: 058
     Dates: start: 20161125, end: 20161225

REACTIONS (14)
  - Hyperhidrosis [Unknown]
  - Injection site rash [Not Recovered/Not Resolved]
  - Injection site swelling [Unknown]
  - Dizziness [Unknown]
  - Injection site erythema [Recovered/Resolved]
  - Peripheral swelling [Unknown]
  - Feeling hot [Unknown]
  - Injection site mass [Unknown]
  - Disturbance in attention [Unknown]
  - Injection site reaction [Unknown]
  - Pallor [Unknown]
  - Rash [Unknown]
  - Pyrexia [Unknown]
  - Malaise [Unknown]

NARRATIVE: CASE EVENT DATE: 20161218
